FAERS Safety Report 17671532 (Version 1)
Quarter: 2020Q2

REPORT INFORMATION
  Report Type: Other
  Country: US (occurrence: US)
  Receive Date: 20200415
  Receipt Date: 20200415
  Transmission Date: 20200713
  Serious: No
  Sender: FDA-Public Use
  Company Number: US-ALKERMES INC.-ALK-2019-006082

PATIENT
  Age: 62 Year
  Sex: Female

DRUGS (1)
  1. VIVITROL [Suspect]
     Active Substance: NALTREXONE
     Indication: PRODUCT USED FOR UNKNOWN INDICATION
     Dosage: 380 MG, Q8WK
     Route: 030
     Dates: start: 20190319

REACTIONS (6)
  - Fatigue [Unknown]
  - Injection site mass [Unknown]
  - Pain [Unknown]
  - Hypoaesthesia [Unknown]
  - Off label use [Not Recovered/Not Resolved]
  - Injection site reaction [Unknown]

NARRATIVE: CASE EVENT DATE: 20190319
